FAERS Safety Report 12297841 (Version 1)
Quarter: 2016Q2

REPORT INFORMATION
  Report Type: Spontaneous
  Country: FR (occurrence: FR)
  Receive Date: 20160422
  Receipt Date: 20160422
  Transmission Date: 20160815
  Serious: Yes (Hospitalization)
  Sender: FDA-Public Use
  Company Number: FR-PFIZER INC-2016220461

PATIENT
  Age: 59 Year
  Sex: Female

DRUGS (5)
  1. SERESTA [Concomitant]
     Active Substance: OXAZEPAM
     Dosage: 50 MG, UNK
     Dates: start: 20160322
  2. XANAX [Suspect]
     Active Substance: ALPRAZOLAM
     Indication: ANXIETY
     Dosage: UNK
     Route: 048
     Dates: start: 2015, end: 20160322
  3. TEMERIT [Suspect]
     Active Substance: NEBIVOLOL
     Indication: HYPERTENSION
     Dosage: 5 MG, UNK
     Route: 048
     Dates: start: 2014, end: 20160322
  4. NORSET [Concomitant]
     Active Substance: MIRTAZAPINE
     Dosage: 15 MG, 1X/DAY (IN THE EVENING)
  5. LYSANXIA [Concomitant]
     Active Substance: PRAZEPAM
     Dosage: UNK
     Dates: start: 20160322

REACTIONS (5)
  - Bradycardia [Recovered/Resolved]
  - Toxicity to various agents [Unknown]
  - Somnolence [Recovered/Resolved]
  - Depressed level of consciousness [Unknown]
  - Overdose [Unknown]

NARRATIVE: CASE EVENT DATE: 20160322
